FAERS Safety Report 10273643 (Version 1)
Quarter: 2014Q2

REPORT INFORMATION
  Report Type: Spontaneous
  Country: US (occurrence: None)
  Receive Date: 20140630
  Receipt Date: 20140630
  Transmission Date: 20141212
  Serious: Yes (Hospitalization)
  Sender: FDA-Public Use
  Company Number: None

PATIENT
  Age: 72 Year
  Sex: Female
  Weight: 55.79 kg

DRUGS (18)
  1. 5-FU [Suspect]
     Indication: PANCREATIC CARCINOMA
     Route: 042
     Dates: start: 20140612
  2. IRINOTECAN [Suspect]
     Indication: PANCREATIC CARCINOMA
     Route: 048
     Dates: start: 20140612
  3. OXALIPLATIN [Suspect]
  4. FOLINIC ACID [Suspect]
  5. AMLODIPINE [Concomitant]
  6. DEXAMETHASONE [Concomitant]
  7. FISH OIL [Concomitant]
  8. VITAMIN D 5000 [Concomitant]
  9. IRBESTARTAN [Concomitant]
  10. LEVOFLOXACIN [Concomitant]
  11. LEXAPRO [Concomitant]
  12. LORAZEPAM [Concomitant]
  13. ONDANSETRON [Concomitant]
  14. PROCHLOPERAZINE MALEATE [Concomitant]
  15. VITAMIN B COMPLEX [Concomitant]
  16. VITAMIN C [Concomitant]
  17. FOLFIRNOX [Concomitant]
  18. LEUCOVORIN [Concomitant]

REACTIONS (1)
  - Febrile neutropenia [None]
